FAERS Safety Report 25774153 (Version 1)
Quarter: 2025Q3

REPORT INFORMATION
  Report Type: Spontaneous
  Country: US (occurrence: None)
  Receive Date: 20250906
  Receipt Date: 20250906
  Transmission Date: 20251021
  Serious: Yes (Other)
  Sender: FDA-CTU
  Company Number: None

PATIENT
  Age: 52 Year
  Sex: Female
  Weight: 81.65 kg

DRUGS (1)
  1. HADLIMA [Suspect]
     Active Substance: ADALIMUMAB-BWWD
     Indication: Arthritis
     Dosage: EVERY 2 WEEKS  GIVEN INTO/UNDER THE SKIN?
     Route: 058

REACTIONS (6)
  - Arthralgia [None]
  - Pain [None]
  - Sciatica [None]
  - Psoriasis [None]
  - Injection site pain [None]
  - Device issue [None]

NARRATIVE: CASE EVENT DATE: 20250901
